FAERS Safety Report 4832807-0 (Version None)
Quarter: 2005Q4

REPORT INFORMATION
  Report Type: 
  Country: None (occurrence: None)
  Receive Date: 20051117
  Receipt Date: 20051107
  Transmission Date: 20060501
  Serious: Yes (Death, Other)
  Sender: FDA-Public Use
  Company Number: US_0511123802

PATIENT
  Age: 82 Year
  Sex: Female
  Weight: 66 kg

DRUGS (4)
  1. HUMALOG MIX 75/25 [Suspect]
     Indication: BLOOD GLUCOSE INCREASED
     Dates: start: 20040101, end: 20051001
  2. COUMADIN [Concomitant]
  3. DIGOXIN [Concomitant]
  4. HYDROCODONE [Concomitant]

REACTIONS (13)
  - CHOLECYSTITIS INFECTIVE [None]
  - COMA [None]
  - CONTUSION [None]
  - DELUSION [None]
  - DYSPNOEA [None]
  - FALL [None]
  - HEART RATE DECREASED [None]
  - INDURATION [None]
  - PAIN [None]
  - PANCREATITIS [None]
  - PERIPANCREATIC FLUID COLLECTION [None]
  - PERITONEAL EFFUSION [None]
  - PLEURAL EFFUSION [None]
